FAERS Safety Report 14632191 (Version 2)
Quarter: 2018Q2

REPORT INFORMATION
  Report Type: Report from Study
  Country: US (occurrence: US)
  Receive Date: 20180313
  Receipt Date: 20180403
  Transmission Date: 20180711
  Serious: Yes (Life-Threatening, Hospitalization)
  Sender: FDA-Public Use
  Company Number: PHEH2018US008600

PATIENT
  Age: 72 Year
  Sex: Female
  Weight: 71.34 kg

DRUGS (1)
  1. KISQALI [Suspect]
     Active Substance: RIBOCICLIB
     Indication: BREAST CANCER
     Dosage: UNK UNK, QD,1-21 OF 28 DAYS
     Route: 048
     Dates: start: 20180129, end: 20180219

REACTIONS (8)
  - Myocardial infarction [Recovered/Resolved with Sequelae]
  - Hyperbilirubinaemia [Recovering/Resolving]
  - Haemolytic anaemia [Recovering/Resolving]
  - Cardiac failure congestive [Recovered/Resolved with Sequelae]
  - Thrombocytopenia [Recovering/Resolving]
  - Weight decreased [Unknown]
  - Asthenia [Unknown]
  - Ill-defined disorder [Unknown]

NARRATIVE: CASE EVENT DATE: 20180220
